FAERS Safety Report 9102045 (Version 1)
Quarter: 2013Q1

REPORT INFORMATION
  Report Type: Spontaneous
  Country: IT (occurrence: IT)
  Receive Date: 20130218
  Receipt Date: 20130218
  Transmission Date: 20140127
  Serious: Yes (Hospitalization)
  Sender: FDA-Public Use
  Company Number: IT-ASTRAZENECA-2013SE09401

PATIENT
  Age: 17006 Day
  Sex: Female

DRUGS (8)
  1. SEROQUEL [Suspect]
     Indication: SCHIZOAFFECTIVE DISORDER
     Route: 048
     Dates: start: 20120505, end: 20121015
  2. SEROQUEL [Suspect]
     Indication: SCHIZOAFFECTIVE DISORDER
     Dosage: 100 MG FILM COATED TABLETS
     Route: 048
  3. ALOPERIDOLO [Concomitant]
  4. ESOMEPRAZOLE [Concomitant]
  5. METOPROLOL [Concomitant]
  6. FUROSEMIDE [Concomitant]
  7. CARDURA [Concomitant]
  8. ENTUMIN [Concomitant]

REACTIONS (3)
  - Overdose [Unknown]
  - Sopor [Unknown]
  - Pyrexia [Unknown]
